FAERS Safety Report 8958937 (Version 1)
Quarter: 2012Q4

REPORT INFORMATION
  Report Type: 
  Country: US (occurrence: US)
  Receive Date: 20121211
  Receipt Date: 20121211
  Transmission Date: 20130627
  Serious: Yes (Other)
  Sender: FDA-Public Use
  Company Number: US-VERTEX PHARMACEUTICAL INC.-2012-023741

PATIENT
  Age: 59 Year
  Sex: Male
  Weight: 81.63 kg

DRUGS (4)
  1. VX-950 (TELAPREVIR) [Suspect]
     Indication: HEPATITIS C
     Dosage: UNK
     Route: 048
     Dates: start: 20120706, end: 20120921
  2. RIBASPHERE [Suspect]
     Indication: HEPATITIS C
     Route: 048
  3. PEGASYS [Suspect]
     Indication: HEPATITIS C
     Route: 058
  4. MULTIVITAMIN                       /00097801/ [Concomitant]

REACTIONS (3)
  - Haemoglobin decreased [Unknown]
  - Oedema peripheral [Not Recovered/Not Resolved]
  - Blood pressure decreased [Not Recovered/Not Resolved]
